FAERS Safety Report 6314527-9 (Version None)
Quarter: 2009Q3

REPORT INFORMATION
  Report Type: 
  Country: None (occurrence: None)
  Receive Date: 20090819
  Receipt Date: 20090810
  Transmission Date: 20100115
  Serious: Yes (Hospitalization, Other)
  Sender: FDA-Public Use
  Company Number: PHHY2009JP33616

PATIENT
  Age: 21 Year
  Sex: Male

DRUGS (5)
  1. CARBAMAZEPINE [Suspect]
     Indication: TRIGEMINAL NEURALGIA
     Dosage: 200 MG/DAY (DAY 1)
     Route: 048
  2. CARBAMAZEPINE [Interacting]
     Dosage: 400 MG/DAY (DAY 3)
     Route: 048
  3. NICARDIPINE HYDROCHLORIDE [Interacting]
  4. AMLODIPINE [Interacting]
  5. METHYLPREDNISOLONE [Concomitant]

REACTIONS (6)
  - ANGIOEDEMA [None]
  - DEPRESSED LEVEL OF CONSCIOUSNESS [None]
  - DRUG INTERACTION [None]
  - HYPERTENSION [None]
  - REVERSIBLE POSTERIOR LEUKOENCEPHALOPATHY SYNDROME [None]
  - UNRESPONSIVE TO STIMULI [None]
